FAERS Safety Report 7743706-9 (Version None)
Quarter: 2011Q3

REPORT INFORMATION
  Report Type: 
  Country: None (occurrence: None)
  Receive Date: 20110912
  Receipt Date: 20110831
  Transmission Date: 20111222
  Serious: Yes (Hospitalization, Other)
  Sender: FDA-Public Use
  Company Number: FR-VERTEX PHARMACEUTICALS INC.-AE-2011-000454

PATIENT
  Sex: Female
  Weight: 74 kg

DRUGS (12)
  1. RIBAVIRIN [Concomitant]
     Dates: start: 20110822
  2. PEGINTERFERON ALFA-2A [Concomitant]
     Indication: HEPATITIS C
     Route: 058
     Dates: start: 20110523
  3. ALDACTAZINE [Concomitant]
     Indication: HYPERTENSION
  4. PEGINTERFERON ALFA-2A [Concomitant]
     Route: 058
     Dates: start: 20110822
  5. RIBAVIRIN [Concomitant]
     Indication: HEPATITIS C
     Route: 048
     Dates: start: 20110523
  6. RIBAVIRIN [Concomitant]
     Dates: start: 20110718
  7. LEVEMIR [Concomitant]
     Indication: DIABETES MELLITUS
  8. PROPRANOLOL [Concomitant]
     Indication: VARICES OESOPHAGEAL
  9. POTASSIUM CHLORIDE [Concomitant]
     Indication: HYPOKALAEMIA
  10. CYTOMEL [Concomitant]
     Indication: HYPOTHYROIDISM
  11. PANTOPRAZOLE [Concomitant]
     Indication: GASTROOESOPHAGEAL REFLUX DISEASE
  12. VX-950 [Suspect]
     Indication: HEPATITIS C
     Route: 048
     Dates: start: 20110523, end: 20110815

REACTIONS (6)
  - TREMOR [None]
  - LEUKOPENIA [None]
  - ASTHENIA [None]
  - ANAEMIA [None]
  - CONFUSIONAL STATE [None]
  - THROMBOCYTOPENIA [None]
